FAERS Safety Report 5709991-X (Version None)
Quarter: 2008Q2

REPORT INFORMATION
  Report Type: 
  Country: None (occurrence: None)
  Receive Date: 20080418
  Receipt Date: 20070604
  Transmission Date: 20081010
  Serious: No
  Sender: FDA-Public Use
  Company Number: US-ASTRAZENECA-2007UW13425

PATIENT
  Age: 59 Year
  Sex: Male
  Weight: 86.2 kg

DRUGS (3)
  1. TOPROL-XL [Suspect]
     Indication: HEART RATE
     Route: 048
     Dates: start: 20060801
  2. LIPITOR [Concomitant]
  3. BENICAR [Concomitant]

REACTIONS (2)
  - DRUG INEFFECTIVE [None]
  - THERAPEUTIC RESPONSE UNEXPECTED [None]
